FAERS Safety Report 18273901 (Version 32)
Quarter: 2025Q3

REPORT INFORMATION
  Report Type: Report from Study
  Country: US (occurrence: US)
  Receive Date: 20200916
  Receipt Date: 20250826
  Transmission Date: 20251020
  Serious: Yes (Hospitalization, Other)
  Sender: TAKEDA
  Company Number: US-SHIRE-US202029978

PATIENT
  Sex: Female
  Weight: 129 kg

DRUGS (53)
  1. HUMAN IMMUNOGLOBULIN G [Suspect]
     Active Substance: HUMAN IMMUNOGLOBULIN G
     Indication: Primary immunodeficiency syndrome
     Dosage: 28 GRAM, Q2WEEKS
     Dates: start: 20181123
  2. HUMAN IMMUNOGLOBULIN G [Suspect]
     Active Substance: HUMAN IMMUNOGLOBULIN G
     Indication: Immunodeficiency common variable
     Dosage: 28 GRAM, Q2WEEKS
  3. HUMAN IMMUNOGLOBULIN G [Suspect]
     Active Substance: HUMAN IMMUNOGLOBULIN G
     Dosage: 30 GRAM, Q2WEEKS
  4. HUMAN IMMUNOGLOBULIN G [Suspect]
     Active Substance: HUMAN IMMUNOGLOBULIN G
  5. DIPHENHYDRAMINE HYDROCHLORIDE [Concomitant]
     Active Substance: DIPHENHYDRAMINE HYDROCHLORIDE
  6. ASPIRIN [Concomitant]
     Active Substance: ASPIRIN
  7. ESOMEPRAZOLE MAGNESIUM [Concomitant]
     Active Substance: ESOMEPRAZOLE MAGNESIUM
  8. TEZSPIRE [Concomitant]
     Active Substance: TEZEPELUMAB-EKKO
  9. VITAMIN D [Concomitant]
     Active Substance: VITAMIN D NOS
  10. EPINEPHRINE [Concomitant]
     Active Substance: EPINEPHRINE
  11. LEVOTHYROXINE SODIUM [Concomitant]
     Active Substance: LEVOTHYROXINE SODIUM
  12. LAMICTAL [Concomitant]
     Active Substance: LAMOTRIGINE
  13. GEODON [Concomitant]
     Active Substance: ZIPRASIDONE HYDROCHLORIDE\ZIPRASIDONE MESYLATE
  14. TYLENOL ARTHRITIS PAIN [Concomitant]
     Active Substance: ACETAMINOPHEN
  15. PROLIA [Concomitant]
     Active Substance: DENOSUMAB
  16. ALLEGRA ALLERGY [Concomitant]
     Active Substance: FEXOFENADINE HYDROCHLORIDE
  17. BUPROPION HYDROCHLORIDE [Concomitant]
     Active Substance: BUPROPION HYDROCHLORIDE
  18. SINGULAIR [Concomitant]
     Active Substance: MONTELUKAST SODIUM
  19. COLESTIPOL HYDROCHLORIDE [Concomitant]
     Active Substance: COLESTIPOL HYDROCHLORIDE
  20. AZELASTINE HYDROCHLORIDE [Concomitant]
     Active Substance: AZELASTINE HYDROCHLORIDE
  21. ALBUTEROL SULFATE [Concomitant]
     Active Substance: ALBUTEROL SULFATE
  22. PRISTIQ EXTENDED-RELEASE [Concomitant]
     Active Substance: DESVENLAFAXINE SUCCINATE
  23. MELOXICAM [Concomitant]
     Active Substance: MELOXICAM
  24. SUCRALFATE [Concomitant]
     Active Substance: SUCRALFATE
  25. LEVOMEFOLIC ACID [Concomitant]
     Active Substance: LEVOMEFOLIC ACID
  26. CYCLOBENZAPRINE [Concomitant]
     Active Substance: CYCLOBENZAPRINE
  27. BREZTRI [Concomitant]
     Active Substance: BUDESONIDE\FORMOTEROL\GLYCOPYRROLATE
  28. Lmx [Concomitant]
  29. LIPITOR [Concomitant]
     Active Substance: ATORVASTATIN CALCIUM
  30. CLONAZEPAM [Concomitant]
     Active Substance: CLONAZEPAM
  31. VITAMIN B [Concomitant]
     Active Substance: VITAMIN B
  32. LEVOTHYROXINE [Concomitant]
     Active Substance: LEVOTHYROXINE
  33. METOPROLOL [Concomitant]
     Active Substance: METOPROLOL
  34. TRAZODONE [Concomitant]
     Active Substance: TRAZODONE HYDROCHLORIDE
  35. ALLEGRA [Concomitant]
     Active Substance: FEXOFENADINE HYDROCHLORIDE
  36. VITAMIN B12 [Concomitant]
     Active Substance: CYANOCOBALAMIN
  37. TRIAMCINOLONE [Concomitant]
     Active Substance: TRIAMCINOLONE
  38. ACETAMINOPHEN [Concomitant]
     Active Substance: ACETAMINOPHEN
  39. SYMBICORT [Concomitant]
     Active Substance: BUDESONIDE\FORMOTEROL FUMARATE DIHYDRATE
  40. VENTOLIN [Concomitant]
     Active Substance: ALBUTEROL SULFATE
  41. SYNTHROID [Concomitant]
     Active Substance: LEVOTHYROXINE SODIUM
  42. DIPHENHYDRAMINE [Concomitant]
     Active Substance: DIPHENHYDRAMINE
  43. METOPROLOL SUCCINATE [Concomitant]
     Active Substance: METOPROLOL SUCCINATE
  44. TRIAMCINOLONE ACETONIDE [Concomitant]
     Active Substance: TRIAMCINOLONE ACETONIDE
  45. TRAZODONE HCL [Concomitant]
     Active Substance: TRAZODONE HYDROCHLORIDE
  46. CYCLOBENZAPRINE HYDROCHLORIDE [Concomitant]
     Active Substance: CYCLOBENZAPRINE HYDROCHLORIDE
  47. COLESTIPOL [Concomitant]
     Active Substance: COLESTIPOL
  48. LIOTHYRONINE [Concomitant]
     Active Substance: LIOTHYRONINE
  49. AZELASTINE [Concomitant]
     Active Substance: AZELASTINE
  50. LAMICTAL XR [Concomitant]
     Active Substance: LAMOTRIGINE
  51. ASPIRIN [Concomitant]
     Active Substance: ASPIRIN
  52. LIOTHYRONINE SODIUM [Concomitant]
     Active Substance: LIOTHYRONINE SODIUM
  53. AZITHROMYCIN [Concomitant]
     Active Substance: AZITHROMYCIN

REACTIONS (39)
  - Tooth abscess [Unknown]
  - Pneumonia [Unknown]
  - Respiratory tract congestion [Unknown]
  - Renal impairment [Recovering/Resolving]
  - Colitis microscopic [Unknown]
  - Epistaxis [Unknown]
  - Colitis [Unknown]
  - Autoimmune thyroiditis [Unknown]
  - Renal injury [Unknown]
  - Bronchitis [Unknown]
  - Pulmonary granuloma [Unknown]
  - Productive cough [Not Recovered/Not Resolved]
  - Atelectasis [Unknown]
  - Limb injury [Unknown]
  - Depression [Unknown]
  - Fall [Unknown]
  - Infusion site vesicles [Unknown]
  - Weight decreased [Unknown]
  - Nasopharyngitis [Unknown]
  - Blood pressure decreased [Unknown]
  - Product dose omission issue [Unknown]
  - Product distribution issue [Unknown]
  - Inappropriate schedule of product administration [Unknown]
  - Arthritis [Unknown]
  - Infection [Unknown]
  - Sinusitis [Unknown]
  - Asthma [Unknown]
  - Musculoskeletal stiffness [Unknown]
  - Blood pressure increased [Unknown]
  - Arthralgia [Unknown]
  - Fatigue [Unknown]
  - Lung disorder [Unknown]
  - COVID-19 [Recovered/Resolved]
  - Drug hypersensitivity [Unknown]
  - Oesophagitis [Unknown]
  - Electrocardiogram ambulatory abnormal [Unknown]
  - Herpes zoster [Unknown]
  - Influenza [Unknown]
  - Rash [Unknown]

NARRATIVE: CASE EVENT DATE: 20200101
